FAERS Safety Report 7548505-9 (Version None)
Quarter: 2011Q2

REPORT INFORMATION
  Report Type: 
  Country: None (occurrence: None)
  Receive Date: 20110615
  Receipt Date: 20110530
  Transmission Date: 20111010
  Serious: Yes (Other)
  Sender: FDA-Public Use
  Company Number: US-BAYER-2010-004351

PATIENT
  Age: 34 Year
  Sex: Female
  Weight: 54.422 kg

DRUGS (6)
  1. YASMIN [Suspect]
     Indication: CONTRACEPTION
     Dosage: UNK
     Dates: start: 19990101, end: 20060101
  2. ADVIL LIQUI-GELS [Concomitant]
     Indication: HEADACHE
     Dosage: UNK UNK, PRN
  3. YAZ [Suspect]
     Indication: ACNE
     Dosage: UNK
     Route: 048
     Dates: start: 19980101, end: 20070101
  4. YASMIN [Suspect]
     Indication: ACNE
     Dosage: UNK
     Route: 048
     Dates: start: 19980101, end: 20070101
  5. YAZ [Suspect]
     Indication: CONTRACEPTION
     Dosage: UNK
     Dates: start: 19990101, end: 20060101
  6. MOTRIN [Concomitant]
     Indication: HEADACHE
     Dosage: UNK UNK, PRN

REACTIONS (3)
  - CHOLECYSTITIS CHRONIC [None]
  - GALLBLADDER NON-FUNCTIONING [None]
  - PAIN [None]
